FAERS Safety Report 13214549 (Version 1)
Quarter: 2017Q1

REPORT INFORMATION
  Report Type: Spontaneous
  Country: US (occurrence: US)
  Receive Date: 20170209
  Receipt Date: 20170209
  Transmission Date: 20170428
  Serious: No
  Sender: FDA-Public Use
  Company Number: US-ALLERGAN-1671185US

PATIENT
  Age: 69 Year
  Sex: Female

DRUGS (3)
  1. RADIESSE [Suspect]
     Active Substance: TRIBASIC CALCIUM PHOSPHATE
     Indication: SKIN WRINKLING
     Dosage: UNK
     Dates: start: 20160922, end: 20160922
  2. BOTOX [Suspect]
     Active Substance: ONABOTULINUMTOXINA
     Indication: SKIN WRINKLING
     Dosage: UNK, SINGLE
     Route: 030
     Dates: start: 20160922, end: 20160922
  3. AMBIEN [Concomitant]
     Active Substance: ZOLPIDEM TARTRATE
     Indication: INSOMNIA

REACTIONS (10)
  - Rhinorrhoea [Recovering/Resolving]
  - Ocular hyperaemia [Not Recovered/Not Resolved]
  - Fatigue [Recovered/Resolved]
  - Injection site bruising [Recovered/Resolved]
  - Eye irritation [Not Recovered/Not Resolved]
  - Eye swelling [Not Recovered/Not Resolved]
  - Eyelid ptosis [Recovered/Resolved]
  - Influenza like illness [Recovered/Resolved]
  - Skin wrinkling [Not Recovered/Not Resolved]
  - Swelling [Recovering/Resolving]

NARRATIVE: CASE EVENT DATE: 20160922
